FAERS Safety Report 7261957-7 (Version None)
Quarter: 2011Q1

REPORT INFORMATION
  Report Type: 
  Country: None (occurrence: None)
  Receive Date: 20110130
  Receipt Date: 20101129
  Transmission Date: 20110831
  Serious: Yes (Other)
  Sender: FDA-Public Use
  Company Number: US-ABBOTT-10P-163-0688882-00

PATIENT
  Age: 45 Year
  Sex: Female

DRUGS (8)
  1. AZOTHIAPRINE [Concomitant]
     Indication: PRODUCT USED FOR UNKNOWN INDICATION
     Dosage: 3 TABLETS DAILY
     Route: 048
  2. HUMIRA [Suspect]
     Dosage: 80MG ONE TIME FOR 2ND LOADING DOSE
     Route: 058
     Dates: start: 20101109, end: 20101109
  3. ATACAND/HYDROCHLOROTHIAZIDE [Concomitant]
     Indication: PRODUCT USED FOR UNKNOWN INDICATION
     Dosage: 1- 16/12.5MG TABLET DAILY
     Route: 048
  4. ASACOL HD [Concomitant]
     Indication: PRODUCT USED FOR UNKNOWN INDICATION
     Dosage: 3- 800MG TABLETS DAILY
     Route: 048
  5. ZOLOFT [Concomitant]
     Indication: PRODUCT USED FOR UNKNOWN INDICATION
     Route: 048
  6. HUMIRA [Suspect]
     Route: 058
     Dates: start: 20101123
  7. HUMIRA [Suspect]
     Indication: CROHN'S DISEASE
     Dosage: 160MG ONE TIME FOR 1ST LOADING DOSE
     Route: 058
     Dates: start: 20101028, end: 20101028
  8. ESTRATEST [Concomitant]
     Indication: PRODUCT USED FOR UNKNOWN INDICATION
     Dosage: 1- 1.25MG/2.5MG TABLET DAILY
     Route: 048

REACTIONS (8)
  - HAEMOGLOBIN DECREASED [None]
  - HAEMATOCRIT DECREASED [None]
  - INCORRECT DOSE ADMINISTERED [None]
  - BLOOD POTASSIUM DECREASED [None]
  - WHITE BLOOD CELL COUNT INCREASED [None]
  - INJECTION SITE PAIN [None]
  - RECTAL HAEMORRHAGE [None]
  - SYNCOPE [None]
